FAERS Safety Report 8580527-1 (Version None)
Quarter: 2012Q3

REPORT INFORMATION
  Report Type: 
  Country: None (occurrence: None)
  Receive Date: 20120808
  Receipt Date: 20120727
  Transmission Date: 20120928
  Serious: No
  Sender: FDA-Public Use
  Company Number: US-ASTRAZENECA-2012SE53716

PATIENT
  Age: 56 Year
  Sex: Female

DRUGS (1)
  1. SYMBICORT [Suspect]
     Dosage: UNKNOWN
     Route: 055

REACTIONS (3)
  - CONDITION AGGRAVATED [None]
  - MULTIPLE ALLERGIES [None]
  - DRUG DOSE OMISSION [None]
